FAERS Safety Report 13068677 (Version 2)
Quarter: 2017Q1

REPORT INFORMATION
  Report Type: Spontaneous
  Country: US (occurrence: US)
  Receive Date: 20161228
  Receipt Date: 20170106
  Transmission Date: 20170428
  Serious: Yes (Other)
  Sender: FDA-Public Use
  Company Number: US-PFIZER INC-2016598608

PATIENT
  Age: 77 Year
  Sex: Female
  Weight: 52.16 kg

DRUGS (2)
  1. LIPITOR [Suspect]
     Active Substance: ATORVASTATIN CALCIUM
     Indication: BLOOD CHOLESTEROL INCREASED
     Dosage: 10 MG, 1X/DAY
     Route: 048
     Dates: start: 20160901
  2. TRAZODONE [Suspect]
     Active Substance: TRAZODONE HYDROCHLORIDE
     Indication: SLEEP DISORDER
     Dosage: 100 MG, 1X/DAY
     Route: 048
     Dates: start: 20160901

REACTIONS (12)
  - Retching [Unknown]
  - Increased upper airway secretion [Unknown]
  - Limb discomfort [Not Recovered/Not Resolved]
  - Discomfort [Not Recovered/Not Resolved]
  - Nausea [Unknown]
  - Drug dose omission [Unknown]
  - Myalgia [Unknown]
  - Pain [Recovered/Resolved]
  - Paraesthesia [Unknown]
  - Choking [Unknown]
  - Anxiety [Not Recovered/Not Resolved]
  - Muscular weakness [Unknown]
